FAERS Safety Report 23967213 (Version 1)
Quarter: 2024Q2

REPORT INFORMATION
  Report Type: Spontaneous
  Country: US (occurrence: US)
  Receive Date: 20240612
  Receipt Date: 20240612
  Transmission Date: 20240716
  Serious: No
  Sender: FDA-Public Use
  Company Number: US-RIGEL Pharmaceuticals, INC-2024FOS000401

PATIENT
  Age: 40 Year
  Sex: Male

DRUGS (1)
  1. TAVALISSE [Suspect]
     Active Substance: FOSTAMATINIB
     Indication: Immune thrombocytopenia
     Dosage: 100 MG, BID
     Route: 048
     Dates: start: 202403

REACTIONS (8)
  - Platelet count decreased [Unknown]
  - White blood cell count increased [Unknown]
  - Paranasal sinus hypersecretion [Unknown]
  - Sinus congestion [Unknown]
  - Decreased appetite [Unknown]
  - Product dose omission issue [Unknown]
  - Fatigue [Unknown]
  - Abdominal discomfort [Unknown]

NARRATIVE: CASE EVENT DATE: 20240301
